FAERS Safety Report 8798704 (Version 4)
Quarter: 2015Q1

REPORT INFORMATION
  Report Type: Report from Study
  Country: DE (occurrence: DE)
  Receive Date: 20120920
  Receipt Date: 20150203
  Transmission Date: 20150721
  Serious: Yes (Hospitalization, Other)
  Sender: FDA-Public Use
  Company Number: DE-ROCHE-1021489

PATIENT
  Age: 63 Year
  Sex: Male
  Weight: 67.7 kg

DRUGS (35)
  1. IRINOTECAN [Suspect]
     Active Substance: IRINOTECAN
     Indication: BRAIN NEOPLASM MALIGNANT
     Dosage: LAST DOSE PRIOR TO SAE: 04/JAN/2012
     Route: 042
     Dates: start: 20111026
  2. DEXAMETHASON [Concomitant]
     Active Substance: DEXAMETHASONE
     Dosage: 4 MG/1
     Route: 065
     Dates: start: 20111005, end: 20111031
  3. DEXAMETHASON [Concomitant]
     Active Substance: DEXAMETHASONE
     Route: 065
     Dates: start: 20111005, end: 20111019
  4. HCT BETA [Concomitant]
     Active Substance: HYDROCHLOROTHIAZIDE
     Route: 065
     Dates: start: 20111031, end: 201209
  5. HCT BETA [Concomitant]
     Active Substance: HYDROCHLOROTHIAZIDE
     Route: 065
     Dates: start: 201209, end: 201210
  6. FELODIPIN [Concomitant]
     Active Substance: FELODIPINE
     Route: 065
     Dates: start: 2011, end: 2012
  7. CITALOPRAM [Concomitant]
     Active Substance: CITALOPRAM HYDROBROMIDE
     Route: 065
     Dates: start: 20120215, end: 201209
  8. METOCLOPRAMID [Concomitant]
     Active Substance: METOCLOPRAMIDE
     Route: 065
     Dates: start: 20111006, end: 201210
  9. TAVOR [Concomitant]
     Active Substance: LORAZEPAM
     Route: 065
     Dates: start: 20121024, end: 201211
  10. DEXAMETHASON [Concomitant]
     Active Substance: DEXAMETHASONE
     Route: 065
     Dates: start: 20111020, end: 201112
  11. SIMVASTATIN. [Concomitant]
     Active Substance: SIMVASTATIN
     Route: 065
     Dates: start: 20120919, end: 20121120
  12. SIMVASTATIN. [Concomitant]
     Active Substance: SIMVASTATIN
     Route: 065
     Dates: start: 20121120
  13. ZOPICLON [Concomitant]
     Active Substance: ZOPICLONE
     Route: 065
     Dates: start: 20111031, end: 201202
  14. NEXIUM [Concomitant]
     Active Substance: ESOMEPRAZOLE MAGNESIUM
     Route: 065
     Dates: start: 201202, end: 201209
  15. LAMOTRIGIN [Concomitant]
     Active Substance: LAMOTRIGINE
     Route: 065
     Dates: start: 20120215, end: 20120224
  16. LAMOTRIGIN [Concomitant]
     Active Substance: LAMOTRIGINE
     Route: 065
     Dates: start: 20120801, end: 201208
  17. DEXAMETHASON [Concomitant]
     Active Substance: DEXAMETHASONE
     Dosage: 3 MG/2
     Route: 065
     Dates: start: 20111031, end: 20111123
  18. EUTHYROX [Concomitant]
     Active Substance: LEVOTHYROXINE SODIUM
     Route: 065
     Dates: start: 2012
  19. RIVOTRIL [Concomitant]
     Active Substance: CLONAZEPAM
     Route: 065
     Dates: start: 201205, end: 201209
  20. REPAGLINID [Concomitant]
     Route: 065
     Dates: start: 201108, end: 201109
  21. CLOPIDOGREL [Concomitant]
     Active Substance: CLOPIDOGREL BISULFATE
     Route: 065
     Dates: start: 201211
  22. LAMOTRIGIN [Concomitant]
     Active Substance: LAMOTRIGINE
     Indication: SEIZURE
     Route: 065
     Dates: start: 20120201, end: 20120215
  23. LAMOTRIGIN [Concomitant]
     Active Substance: LAMOTRIGINE
     Route: 065
     Dates: start: 20120224, end: 201207
  24. LAMOTRIGIN [Concomitant]
     Active Substance: LAMOTRIGINE
     Route: 065
     Dates: start: 20120829, end: 201209
  25. LISINOPRIL. [Concomitant]
     Active Substance: LISINOPRIL
     Route: 065
     Dates: start: 2011, end: 2012
  26. EUTHYROX [Concomitant]
     Active Substance: LEVOTHYROXINE SODIUM
     Route: 065
     Dates: start: 201207, end: 20120919
  27. HCT BETA [Concomitant]
     Active Substance: HYDROCHLOROTHIAZIDE
     Route: 065
     Dates: start: 2011, end: 20111031
  28. SIMVASTATIN. [Concomitant]
     Active Substance: SIMVASTATIN
     Route: 065
     Dates: start: 2011, end: 201209
  29. MIRTAZAPIN [Concomitant]
     Active Substance: MIRTAZAPINE
     Route: 065
     Dates: start: 20120919, end: 201210
  30. BEVACIZUMAB [Suspect]
     Active Substance: BEVACIZUMAB
     Indication: BRAIN NEOPLASM MALIGNANT
     Dosage: LAST DOSE PRIOR TO SAE: 29/AUG/2012.
     Route: 042
     Dates: start: 20110831
  31. LISINOPRIL. [Concomitant]
     Active Substance: LISINOPRIL
     Dosage: 20 MG/2
     Route: 065
  32. METOCLOPRAMID [Concomitant]
     Active Substance: METOCLOPRAMIDE
     Route: 065
     Dates: start: 201110, end: 201110
  33. LAXOBERAL [Concomitant]
     Active Substance: SODIUM PICOSULFATE
     Route: 065
     Dates: start: 20120201, end: 201204
  34. DEXAMETHASON [Concomitant]
     Active Substance: DEXAMETHASONE
     Dosage: 2 MG/1
     Route: 065
     Dates: start: 20111005, end: 20111031
  35. DEXAMETHASON [Concomitant]
     Active Substance: DEXAMETHASONE
     Dosage: 3 MG/1
     Route: 065
     Dates: start: 20111123

REACTIONS (2)
  - Seizure [Recovered/Resolved]
  - Seizure [Recovered/Resolved]

NARRATIVE: CASE EVENT DATE: 20111201
